FAERS Safety Report 8236606-1 (Version None)
Quarter: 2012Q1

REPORT INFORMATION
  Report Type: 
  Country: None (occurrence: None)
  Receive Date: 20120326
  Receipt Date: 20120326
  Transmission Date: 20120608
  Serious: Yes (Disabling)
  Sender: FDA-Public Use
  Company Number: None

PATIENT
  Sex: Female
  Weight: 126.1 kg

DRUGS (1)
  1. ACTOS [Suspect]
     Indication: DIABETES MELLITUS
     Dosage: 1 TABLET DAILY
     Dates: start: 20040101, end: 20110101

REACTIONS (3)
  - ASTHENIA [None]
  - SWELLING [None]
  - BURNING SENSATION [None]
